FAERS Safety Report 25191777 (Version 1)
Quarter: 2025Q2

REPORT INFORMATION
  Report Type: Spontaneous
  Country: US (occurrence: None)
  Receive Date: 20250410
  Receipt Date: 20250410
  Transmission Date: 20250717
  Serious: Yes (Other)
  Sender: FDA-CTU
  Company Number: None

PATIENT
  Age: 27 Year
  Sex: Male
  Weight: 136.08 kg

DRUGS (3)
  1. ABILIFY [Suspect]
     Active Substance: ARIPIPRAZOLE
     Indication: Depression
     Dosage: FREQUENCY : DAILY;?
     Dates: start: 20220512, end: 20230730
  2. ZOLOFT [Suspect]
     Active Substance: SERTRALINE HYDROCHLORIDE
  3. ABILIFY [Suspect]
     Active Substance: ARIPIPRAZOLE

REACTIONS (5)
  - Compulsions [None]
  - Compulsive sexual behaviour [None]
  - Anxiety [None]
  - Post-traumatic stress disorder [None]
  - Insomnia [None]

NARRATIVE: CASE EVENT DATE: 20230601
